FAERS Safety Report 6199576-6 (Version None)
Quarter: 2009Q2

REPORT INFORMATION
  Report Type: 
  Country: None (occurrence: None)
  Receive Date: 20090522
  Receipt Date: 20090514
  Transmission Date: 20091009
  Serious: Yes (Other)
  Sender: FDA-Public Use
  Company Number: B0572106A

PATIENT
  Sex: Male
  Weight: 21 kg

DRUGS (4)
  1. RELENZA [Suspect]
     Dosage: 10MG TWICE PER DAY
     Route: 055
     Dates: start: 20090422, end: 20090424
  2. CLARITHROMYCIN [Concomitant]
     Indication: BRONCHITIS
     Route: 048
     Dates: start: 20090423, end: 20090424
  3. ASVERIN [Concomitant]
     Indication: BRONCHITIS
     Route: 048
     Dates: start: 20090423, end: 20090424
  4. CALONAL [Concomitant]
     Indication: ANTIPYRESIS
     Dosage: 6G PER DAY
     Route: 048
     Dates: start: 20090423, end: 20090423

REACTIONS (3)
  - ABNORMAL BEHAVIOUR [None]
  - EMOTIONAL DISORDER [None]
  - SPEECH DISORDER [None]
